FAERS Safety Report 9778874 (Version 2)
Quarter: 2014Q1

REPORT INFORMATION
  Report Type: Spontaneous
  Country: BR (occurrence: BR)
  Receive Date: 20131223
  Receipt Date: 20140123
  Transmission Date: 20141002
  Serious: Yes (Disabling)
  Sender: FDA-Public Use
  Company Number: BR-009507513-1312BRA009813

PATIENT
  Age: 71 Year
  Sex: Female
  Weight: 65 kg

DRUGS (4)
  1. ZETIA [Suspect]
     Indication: BLOOD CHOLESTEROL INCREASED
     Dosage: 10 MG, QD
     Route: 048
     Dates: start: 2013, end: 2013
  2. ZETIA [Suspect]
     Dosage: 10 MG, QD
     Route: 048
  3. CARVEDILOL [Concomitant]
     Indication: ARRHYTHMIA
     Dosage: 25 MG, BID
     Route: 048
  4. CARVEDILOL [Concomitant]
     Dosage: 12.5 MG, BID
     Route: 048

REACTIONS (7)
  - Intervertebral disc protrusion [Recovered/Resolved]
  - Blood pressure decreased [Recovered/Resolved]
  - Insomnia [Recovered/Resolved]
  - Anxiety [Recovered/Resolved]
  - Arterial disorder [Recovered/Resolved]
  - Vitamin D deficiency [Recovered/Resolved]
  - Gastritis [Recovered/Resolved]
